FAERS Safety Report 13688497 (Version 1)
Quarter: 2017Q2

REPORT INFORMATION
  Report Type: Spontaneous
  Country: US (occurrence: US)
  Receive Date: 20170623
  Receipt Date: 20170623
  Transmission Date: 20170830
  Serious: Yes (Hospitalization)
  Sender: FDA-Public Use
  Company Number: None

PATIENT
  Age: 29 Year
  Sex: Female
  Weight: 126.4 kg

DRUGS (2)
  1. POTASSIUM PHOSPHATE 45MM/15ML [Suspect]
     Active Substance: POTASSIUM PHOSPHATE
     Indication: MALNUTRITION
     Route: 041
     Dates: start: 20170615, end: 20170619
  2. INFUVITE [Suspect]
     Active Substance: VITAMINS

REACTIONS (7)
  - Vomiting [None]
  - Infection [None]
  - Nausea [None]
  - Dyspnoea [None]
  - Product quality issue [None]
  - Tachycardia [None]
  - Post procedural complication [None]

NARRATIVE: CASE EVENT DATE: 20170622
